FAERS Safety Report 12960294 (Version 2)
Quarter: 2016Q4

REPORT INFORMATION
  Report Type: Spontaneous
  Country: US (occurrence: US)
  Receive Date: 20161121
  Receipt Date: 20161214
  Transmission Date: 20170207
  Serious: Yes (Hospitalization, Other)
  Sender: FDA-Public Use
  Company Number: US-SAOL THERAPEUTICS-2016SAO01068

PATIENT
  Sex: Female

DRUGS (6)
  1. CARISOPRODOL. [Concomitant]
     Active Substance: CARISOPRODOL
     Dosage: 350 MG, 2X/DAY
  2. BACLOFEN. [Suspect]
     Active Substance: BACLOFEN
     Indication: PARAPARESIS
     Dosage: UNK
     Route: 037
     Dates: start: 20160316
  3. BACLOFEN. [Suspect]
     Active Substance: BACLOFEN
     Indication: MULTIPLE SCLEROSIS
  4. PAROXETINE. [Concomitant]
     Active Substance: PAROXETINE
     Dosage: 40 MG, 1X/DAY
  5. GILENYA [Concomitant]
     Active Substance: FINGOLIMOD HYDROCHLORIDE
     Dosage: 0.5 MG, 1X/DAY
  6. HYDROCODONE [Concomitant]
     Active Substance: HYDROCODONE
     Dosage: UNK, AS NEEDED

REACTIONS (12)
  - Road traffic accident [Unknown]
  - Mental status changes [Unknown]
  - Somnolence [Unknown]
  - Device dislocation [Unknown]
  - Diplegia [Unknown]
  - Pneumonia [Unknown]
  - Diplopia [Unknown]
  - Fall [Recovered/Resolved]
  - Multiple sclerosis relapse [Unknown]
  - Urinary tract infection [Unknown]
  - Overdose [Unknown]
  - Eye contusion [Unknown]

NARRATIVE: CASE EVENT DATE: 2016
